FAERS Safety Report 9158357 (Version 2)
Quarter: 2013Q1

REPORT INFORMATION
  Report Type: Spontaneous
  Country: TR (occurrence: TR)
  Receive Date: 20130312
  Receipt Date: 20130319
  Transmission Date: 20140127
  Serious: Yes (Death)
  Sender: FDA-Public Use
  Company Number: TR-VERTEX PHARMACEUTICALS INC.-2013-003376

PATIENT
  Age: 48 Year
  Sex: Female

DRUGS (3)
  1. INCIVO [Suspect]
     Indication: HEPATITIS C
     Dosage: 750 MG, TID
     Route: 048
     Dates: start: 20130201, end: 20130308
  2. PEG INTERFERON [Suspect]
     Indication: HEPATITIS C
     Dosage: 180 ?G, QW
     Route: 065
  3. RIBAVIRIN [Suspect]
     Indication: HEPATITIS C
     Dosage: DOSAGE FORM: UNSPECIFIED
     Route: 065
     Dates: start: 20130201, end: 20130308

REACTIONS (1)
  - Cerebral haemorrhage [Fatal]
